FAERS Safety Report 20643448 (Version 2)
Quarter: 2022Q2

REPORT INFORMATION
  Report Type: Spontaneous
  Country: RU (occurrence: RU)
  Receive Date: 20220328
  Receipt Date: 20220419
  Transmission Date: 20220720
  Serious: Yes (Hospitalization, Other)
  Sender: FDA-Public Use
  Company Number: RU-BAYER-2022A044054

PATIENT
  Age: 44 Year
  Sex: Female

DRUGS (1)
  1. MIRENA [Suspect]
     Active Substance: LEVONORGESTREL
     Indication: Contraception
     Dosage: 20?G/DAY
     Route: 015
     Dates: start: 2018, end: 202203

REACTIONS (1)
  - Breast cancer female [None]

NARRATIVE: CASE EVENT DATE: 20210101
